FAERS Safety Report 14641839 (Version 14)
Quarter: 2019Q2

REPORT INFORMATION
  Report Type: Report from Study
  Country: GB (occurrence: GB)
  Receive Date: 20180315
  Receipt Date: 20190621
  Transmission Date: 20190711
  Serious: Yes (Hospitalization)
  Sender: FDA-Public Use
  Company Number: GB-ROCHE-2086312

PATIENT
  Age: 73 Year
  Sex: Female
  Weight: 67 kg

DRUGS (16)
  1. CALCI-D [Concomitant]
     Indication: OSTEOPOROSIS PROPHYLAXIS
     Route: 065
     Dates: start: 20170125
  2. DOXYCYCLINE. [Concomitant]
     Active Substance: DOXYCYCLINE
     Indication: NASAL CONGESTION
     Route: 048
     Dates: start: 20181112, end: 20181118
  3. PARACETAMOL [Concomitant]
     Active Substance: ACETAMINOPHEN
     Indication: ANALGESIC THERAPY
     Route: 048
     Dates: start: 20180306
  4. VEMURAFENIB. [Suspect]
     Active Substance: VEMURAFENIB
     Indication: MALIGNANT MELANOMA
     Dosage: ON 26/FEB/2018, SHE RECEIVED MOST RECENT DOSE OF VEMURAFENIB, ON 03/MAR/2018, SHE RECEIVED MOST RECE
     Route: 048
     Dates: start: 20180223
  5. DERMOVATE [Concomitant]
     Active Substance: CLOBETASOL
     Route: 061
     Dates: start: 20180810
  6. ELOCON [Concomitant]
     Active Substance: MOMETASONE FUROATE
     Indication: RASH MACULO-PAPULAR
     Dosage: 0.1 UNKNOWN
     Route: 048
     Dates: start: 20180309, end: 20180310
  7. MIRTAZAPINE. [Concomitant]
     Active Substance: MIRTAZAPINE
     Indication: ANXIETY
     Route: 048
     Dates: start: 20180406
  8. ENOXAPARIN [Concomitant]
     Active Substance: ENOXAPARIN
     Route: 065
     Dates: start: 20180305, end: 20180305
  9. COBIMETINIB. [Suspect]
     Active Substance: COBIMETINIB
     Indication: MALIGNANT MELANOMA
     Dosage: ON 26/FEB/2018, SHE RECEIVED MOST RECENT DOSE OF COBIMETINIB PRIOR TO EVENT ONSET.?ON 03/MAR/2018, S
     Route: 048
     Dates: start: 20180223
  10. BLINDED ATEZOLIZUMAB [Suspect]
     Active Substance: ATEZOLIZUMAB
     Indication: MALIGNANT MELANOMA
     Dosage: MOST RECENT DOSE OF BLINDED ATEZOLIZUMAB WAS RECEIVED ON 20/APR/2018 PRIOR TO EVENT ONSET.?ON 05/OCT
     Route: 042
     Dates: start: 20180322
  11. FLUCONAZOLE. [Concomitant]
     Active Substance: FLUCONAZOLE
     Indication: ORAL CANDIDIASIS
     Route: 048
     Dates: start: 20180406, end: 20180410
  12. CHLORAMPHENICOL [Concomitant]
     Active Substance: CHLORAMPHENICOL
     Dosage: DOSE: 1 UNKNOWN
     Route: 061
     Dates: start: 20181003, end: 20181004
  13. PROPYLENE GLYCOL [Concomitant]
     Active Substance: PROPYLENE GLYCOL
     Route: 061
     Dates: start: 20180615
  14. SIMVASTATIN. [Concomitant]
     Active Substance: SIMVASTATIN
     Indication: CARDIOVASCULAR EVENT PROPHYLAXIS
     Route: 065
     Dates: start: 20120202
  15. DOXYCYCLINE. [Concomitant]
     Active Substance: DOXYCYCLINE
     Route: 065
     Dates: start: 20180516, end: 20180522
  16. SEBCO [Concomitant]
     Route: 061
     Dates: start: 20180907

REACTIONS (4)
  - Influenza like illness [Recovered/Resolved]
  - Chorioretinopathy [Recovered/Resolved with Sequelae]
  - Vitreous haemorrhage [Recovered/Resolved]
  - Chorioretinopathy [Recovered/Resolved]

NARRATIVE: CASE EVENT DATE: 20180227
